FAERS Safety Report 23539836 (Version 1)
Quarter: 2024Q1

REPORT INFORMATION
  Report Type: Spontaneous
  Country: US (occurrence: US)
  Receive Date: 20240219
  Receipt Date: 20240219
  Transmission Date: 20240409
  Serious: No
  Sender: FDA-Public Use
  Company Number: US-BRACCO-2023US02484

PATIENT

DRUGS (1)
  1. ISOVUE-M 200 [Suspect]
     Active Substance: IOPAMIDOL
     Indication: X-ray
     Dosage: UNK, SINGLE
     Route: 037

REACTIONS (2)
  - Drug ineffective [Unknown]
  - No adverse event [Unknown]
